FAERS Safety Report 10187580 (Version 1)
Quarter: 2014Q2

REPORT INFORMATION
  Report Type: Spontaneous
  Country: US (occurrence: US)
  Receive Date: 20140522
  Receipt Date: 20140522
  Transmission Date: 20141212
  Serious: No
  Sender: FDA-Public Use
  Company Number: US-SANOFI-AVENTIS-2013SA084543

PATIENT
  Age: 56 Year
  Sex: Female

DRUGS (3)
  1. LANTUS SOLOSTAR [Suspect]
     Indication: TYPE 2 DIABETES MELLITUS
     Route: 058
     Dates: start: 20130809
  2. SOLOSTAR [Concomitant]
     Indication: TYPE 2 DIABETES MELLITUS
     Dates: start: 20130809
  3. LEVEMIR [Concomitant]

REACTIONS (9)
  - Dizziness [Unknown]
  - Hyperhidrosis [Unknown]
  - Palpitations [Unknown]
  - Vision blurred [Unknown]
  - Feeling drunk [Unknown]
  - Confusional state [Unknown]
  - Balance disorder [Unknown]
  - Fall [Unknown]
  - Incorrect dose administered [Unknown]
